FAERS Safety Report 8327316-0 (Version None)
Quarter: 2012Q2

REPORT INFORMATION
  Report Type: 
  Country: None (occurrence: None)
  Receive Date: 20120502
  Receipt Date: 20120423
  Transmission Date: 20120825
  Serious: Yes (Hospitalization)
  Sender: FDA-Public Use
  Company Number: US-BIOGENIDEC-2012BI014310

PATIENT
  Age: 24 Year
  Sex: Female

DRUGS (1)
  1. AVONEX [Suspect]
     Indication: MULTIPLE SCLEROSIS
     Route: 030
     Dates: start: 20061213

REACTIONS (8)
  - MENSTRUATION DELAYED [None]
  - INSOMNIA [None]
  - PRESYNCOPE [None]
  - DEPRESSION [None]
  - ANXIETY [None]
  - MULTIPLE SCLEROSIS RELAPSE [None]
  - STRESS [None]
  - BLOOD PRESSURE INCREASED [None]
